FAERS Safety Report 8728749 (Version 4)
Quarter: 2012Q4

REPORT INFORMATION
  Report Type: Report from Study
  Country: FR (occurrence: FR)
  Receive Date: 20120817
  Receipt Date: 20121128
  Transmission Date: 20130627
  Serious: Yes (Other)
  Sender: FDA-Public Use
  Company Number: FR-CELGENEUS-056-C5013-12063914

PATIENT
  Age: 69 Year
  Sex: Male
  Weight: 60 kg

DRUGS (8)
  1. CC-5013 [Suspect]
     Indication: MULTIPLE MYELOMA
     Dosage: 25 Milligram
     Route: 048
     Dates: start: 20100630
  2. CC-5013 [Suspect]
     Dosage: 25 Milligram
     Route: 048
     Dates: start: 20120627
  3. DEXAMETHASONE [Suspect]
     Indication: MULTIPLE MYELOMA
     Dosage: 40 Milligram
     Route: 048
     Dates: start: 20100630
  4. DEXAMETHASONE [Suspect]
     Dosage: 20 Milligram
     Route: 048
     Dates: start: 20120627
  5. INEXIUM [Concomitant]
     Indication: GASTRIC ULCER PROPHYLAXIS
     Dosage: 20 Milligram
     Route: 048
     Dates: start: 201003
  6. DUROGESIC [Concomitant]
     Indication: UPPER BACK PAIN
     Route: 062
     Dates: start: 20100618
  7. KARDEGIC [Concomitant]
     Indication: THROMBOSIS PROPHYLAXIS
     Dosage: 75 Milligram
     Route: 048
     Dates: start: 20100708
  8. KALEORID [Concomitant]
     Indication: HYPOKALEMIA
     Dosage: 3000 Milligram
     Route: 048
     Dates: start: 20100708

REACTIONS (1)
  - Basal cell carcinoma [Recovered/Resolved]
